FAERS Safety Report 7154154-7 (Version None)
Quarter: 2010Q4

REPORT INFORMATION
  Report Type: 
  Country: None (occurrence: None)
  Receive Date: 20101213
  Receipt Date: 20101207
  Transmission Date: 20110411
  Serious: Yes (Other)
  Sender: FDA-Public Use
  Company Number: FR-PFIZER INC-2010165825

PATIENT
  Age: 78 Year
  Sex: Female

DRUGS (2)
  1. TAHOR [Suspect]
  2. FUCIDINE [Interacting]

REACTIONS (2)
  - DRUG INTERACTION [None]
  - RHABDOMYOLYSIS [None]
